FAERS Safety Report 18860196 (Version 1)
Quarter: 2021Q1

REPORT INFORMATION
  Report Type: Spontaneous
  Country: US (occurrence: US)
  Receive Date: 20210208
  Receipt Date: 20210208
  Transmission Date: 20210420
  Serious: No
  Sender: FDA-Public Use
  Company Number: US-BAUSCH-BL-2021-001898

PATIENT
  Age: 42 Year
  Sex: Female

DRUGS (1)
  1. JUBLIA [Suspect]
     Active Substance: EFINACONAZOLE
     Indication: ONYCHOMYCOSIS
     Dosage: APPROXIMATELY 4 YEARS AGO
     Route: 061

REACTIONS (4)
  - Onychomycosis [Unknown]
  - Inability to afford medication [Unknown]
  - Insurance issue [Unknown]
  - Disease recurrence [Unknown]

NARRATIVE: CASE EVENT DATE: 202101
